FAERS Safety Report 6048503-0 (Version None)
Quarter: 2009Q1

REPORT INFORMATION
  Report Type: 
  Country: None (occurrence: None)
  Receive Date: 20090123
  Receipt Date: 20090114
  Transmission Date: 20090719
  Serious: Yes (Other)
  Sender: FDA-Public Use
  Company Number: B0554706A

PATIENT
  Age: 64 Year
  Sex: Female

DRUGS (4)
  1. AUGMENTIN '125' [Suspect]
     Indication: TOOTH EXTRACTION
     Dosage: 500MG TWICE PER DAY
     Route: 048
     Dates: start: 20081201, end: 20081201
  2. IBUPROFEN TABLETS [Suspect]
     Dosage: 2TAB PER DAY
     Route: 048
     Dates: start: 20081201, end: 20081201
  3. LEVOTHYROX [Concomitant]
     Indication: HYPOTHYROIDISM
     Route: 048
  4. ESTROGENIC SUBSTANCE [Concomitant]
     Indication: HORMONE REPLACEMENT THERAPY
     Route: 062

REACTIONS (7)
  - ALANINE AMINOTRANSFERASE INCREASED [None]
  - ASPARTATE AMINOTRANSFERASE INCREASED [None]
  - HEPATIC ENZYME INCREASED [None]
  - HEPATITIS [None]
  - HYPERTENSION [None]
  - JAUNDICE [None]
  - PLEURAL EFFUSION [None]
